FAERS Safety Report 4446291-2 (Version None)
Quarter: 2004Q3

REPORT INFORMATION
  Report Type: 
  Country: None (occurrence: None)
  Receive Date: 20040907
  Receipt Date: 20040830
  Transmission Date: 20050211
  Serious: Yes (Other)
  Sender: FDA-Public Use
  Company Number: 200414242BCC

PATIENT
  Age: 39 Year
  Sex: Female
  Weight: 68.9467 kg

DRUGS (1)
  1. ORIGINAL ALKA-SELTZER TABLETS [Suspect]
     Dosage: 650 MG,  BID, ORAL
     Route: 048

REACTIONS (2)
  - BLOOD IRON DECREASED [None]
  - DRUG DEPENDENCE [None]
